FAERS Safety Report 8959936 (Version 2)
Quarter: 2013Q1

REPORT INFORMATION
  Report Type: Spontaneous
  Country: FR (occurrence: FR)
  Receive Date: 20121212
  Receipt Date: 20130116
  Transmission Date: 20140127
  Serious: Yes (Life-Threatening, Hospitalization)
  Sender: FDA-Public Use
  Company Number: PHHY2012FR110180

PATIENT
  Age: 84 Year
  Sex: Male

DRUGS (7)
  1. EXELON PATCH [Suspect]
     Indication: DEMENTIA ALZHEIMER^S TYPE
     Dosage: 4.6 MG, DAILY
     Route: 062
     Dates: start: 20121019, end: 20121026
  2. APROVEL [Concomitant]
  3. LASILIX [Concomitant]
     Dosage: 40 MG, QD
     Route: 048
  4. CARDENSIEL [Concomitant]
     Dosage: 1.25 MG, QD
     Route: 048
  5. PLAVIX [Concomitant]
     Dosage: 75 MG, QD
     Route: 048
  6. MODOPAR [Concomitant]
     Dosage: 62.5 MG, TID
     Route: 048
  7. LAMICTAL [Concomitant]

REACTIONS (5)
  - Grand mal convulsion [Recovered/Resolved with Sequelae]
  - Convulsion [Recovered/Resolved]
  - Respiratory arrest [Recovered/Resolved]
  - Cognitive disorder [Unknown]
  - Condition aggravated [Unknown]
